FAERS Safety Report 9361146 (Version 1)
Quarter: 2013Q2

REPORT INFORMATION
  Report Type: Spontaneous
  Country: CA (occurrence: CA)
  Receive Date: 20130621
  Receipt Date: 20130621
  Transmission Date: 20140414
  Serious: Yes (Other)
  Sender: FDA-Public Use
  Company Number: CA-TEVA-414227USA

PATIENT
  Sex: Female

DRUGS (1)
  1. SERTRALINE [Suspect]
     Route: 065

REACTIONS (3)
  - Coeliac disease [Unknown]
  - Diarrhoea [Unknown]
  - Abdominal discomfort [Unknown]
